FAERS Safety Report 14157916 (Version 1)
Quarter: 2017Q4

REPORT INFORMATION
  Report Type: Spontaneous
  Country: US (occurrence: US)
  Receive Date: 20171103
  Receipt Date: 20171103
  Transmission Date: 20180321
  Serious: Yes (Other)
  Sender: FDA-Public Use
  Company Number: US-JNJFOC-20171032744

PATIENT
  Age: 70 Year
  Sex: Female

DRUGS (1)
  1. XARELTO [Suspect]
     Active Substance: RIVAROXABAN
     Indication: THROMBOSIS
     Route: 048

REACTIONS (5)
  - Vomiting [Recovering/Resolving]
  - Off label use [Unknown]
  - Syncope [Recovering/Resolving]
  - Dyspepsia [Recovering/Resolving]
  - Product use in unapproved indication [Unknown]
